FAERS Safety Report 9539087 (Version 2)
Quarter: 2013Q4

REPORT INFORMATION
  Report Type: Spontaneous
  Country: US (occurrence: US)
  Receive Date: 20130920
  Receipt Date: 20131226
  Transmission Date: 20140711
  Serious: Yes (Other)
  Sender: FDA-Public Use
  Company Number: US-SHIRE-ALL1-2013-06291

PATIENT
  Age: 8 Year
  Sex: Male
  Weight: 29.48 kg

DRUGS (5)
  1. VYVANSE [Suspect]
     Indication: ATTENTION DEFICIT/HYPERACTIVITY DISORDER
     Dosage: 20 MG, 1X/DAY:QD
     Route: 048
     Dates: start: 201210, end: 2012
  2. VYVANSE [Suspect]
     Dosage: 40 MG, 1X/DAY:QD
     Route: 048
     Dates: start: 2012
  3. MELATONIN [Concomitant]
     Indication: SLEEP DISORDER
     Dosage: 3 MG, 1X/DAY:QD (AT BEDTIME)
     Route: 065
     Dates: start: 201304
  4. OMNARIS [Concomitant]
     Indication: RHINITIS
     Dosage: UNK UNK, 1X/DAY:QD
     Route: 055
     Dates: start: 201308
  5. FEXOFENADINE [Concomitant]
     Indication: RHINITIS
     Dosage: 60 MG, 2X/DAY:BID
     Route: 065
     Dates: start: 201308

REACTIONS (3)
  - Haemorrhage [Not Recovered/Not Resolved]
  - Gait disturbance [Not Recovered/Not Resolved]
  - Haematoma [Not Recovered/Not Resolved]
